FAERS Safety Report 4693703-5 (Version None)
Quarter: 2005Q2

REPORT INFORMATION
  Report Type: 
  Country: None (occurrence: None)
  Receive Date: 20050615
  Receipt Date: 20050531
  Transmission Date: 20051028
  Serious: Yes (Hospitalization, Other)
  Sender: FDA-Public Use
  Company Number: US_000643235

PATIENT
  Age: 68 Year
  Sex: Female
  Weight: 73 kg

DRUGS (12)
  1. HUMALOG [Suspect]
     Indication: DIABETES MELLITUS
     Dosage: 19 U DAY
     Dates: start: 19991130
  2. HUMULIN N [Suspect]
     Indication: DIABETES MELLITUS
     Dosage: 1 U AT BEDTIME
     Dates: start: 19991130, end: 20041101
  3. COUMADIN [Concomitant]
  4. MEVACOR [Concomitant]
  5. EMETROL [Concomitant]
  6. LOPRESSOR [Concomitant]
  7. DIGOXIN [Concomitant]
  8. K-DUR 10 [Concomitant]
  9. TYLENOL [Concomitant]
  10. VITAMIN B-12 [Concomitant]
  11. ARANESP [Concomitant]
  12. PROCRIT (EPOETIN ALFA) [Concomitant]

REACTIONS (26)
  - BLINDNESS [None]
  - BLOOD GLUCOSE DECREASED [None]
  - BLOOD GLUCOSE FLUCTUATION [None]
  - BLOOD GLUCOSE INCREASED [None]
  - BONE MARROW DEPRESSION [None]
  - CHOLELITHIASIS [None]
  - EYE HAEMORRHAGE [None]
  - HALLUCINATION [None]
  - INFECTION [None]
  - LIVER DISORDER [None]
  - MEMORY IMPAIRMENT [None]
  - MENTAL DISORDER [None]
  - MYELODYSPLASTIC SYNDROME [None]
  - MYOCARDIAL INFARCTION [None]
  - PAIN IN EXTREMITY [None]
  - PHARMACEUTICAL PRODUCT COMPLAINT [None]
  - PNEUMONIA VIRAL [None]
  - POST PROCEDURAL COMPLICATION [None]
  - PULMONARY THROMBOSIS [None]
  - RENAL IMPAIRMENT [None]
  - STOMACH DISCOMFORT [None]
  - STRESS [None]
  - THINKING ABNORMAL [None]
  - THROMBOSIS [None]
  - WEIGHT DECREASED [None]
  - WEIGHT INCREASED [None]
